FAERS Safety Report 21444707 (Version 1)
Quarter: 2022Q4

REPORT INFORMATION
  Report Type: Spontaneous
  Country: DE (occurrence: DE)
  Receive Date: 20221012
  Receipt Date: 20221012
  Transmission Date: 20230113
  Serious: Yes (Hospitalization)
  Sender: FDA-Public Use
  Company Number: DE-NOVARTISPH-NVSC2022DE228267

PATIENT
  Age: 37 Year
  Sex: Female
  Weight: 57.8 kg

DRUGS (7)
  1. PACLITAXEL [Suspect]
     Active Substance: PACLITAXEL
     Indication: Breast cancer
     Dosage: 144 MG (LAST DOSE BEFORE SAE 30 MAR 2022)
     Route: 042
     Dates: start: 20220330, end: 20220728
  2. CYCLOPHOSPHAMIDE [Suspect]
     Active Substance: CYCLOPHOSPHAMIDE
     Indication: Breast cancer
     Dosage: 960 MG (LAST DOSE BEFORE SAE 09 MAR 2022)
     Route: 042
     Dates: start: 20220126, end: 20220309
  3. EPIRUBICIN [Suspect]
     Active Substance: EPIRUBICIN
     Indication: Breast cancer
     Dosage: 144 MG (LAST DOSE BEFORE SAE 09 MAR 2022)
     Route: 042
     Dates: start: 20220126, end: 20220309
  4. CARBOPLATIN [Suspect]
     Active Substance: CARBOPLATIN
     Indication: Breast cancer
     Dosage: 250 MG (LAST DOSE BEFORE SAE 30 MAR 2022)
     Route: 042
     Dates: start: 20220330, end: 20220706
  5. PERTUZUMAB [Suspect]
     Active Substance: PERTUZUMAB
     Indication: Breast cancer
     Dosage: 480 MG (LAST DOSE BEFORE SAE 30 MAR 2022)
     Route: 042
     Dates: start: 20220330, end: 20220712
  6. TRASTUZUMAB [Suspect]
     Active Substance: TRASTUZUMAB
     Indication: Breast cancer
     Dosage: 480 MG (LAST DOSE BEFORE SAE 30/03/2022)
     Route: 042
     Dates: start: 20220330, end: 20220712
  7. ATEZOLIZUMAB [Suspect]
     Active Substance: ATEZOLIZUMAB
     Indication: Breast cancer
     Dosage: 420 MG (LAST DOSE BEFORE SAE 30 MAR 2022)
     Route: 042
     Dates: start: 20220126, end: 20220406

REACTIONS (1)
  - Hypersensitivity [Recovered/Resolved]

NARRATIVE: CASE EVENT DATE: 20220330
